FAERS Safety Report 7528808-4 (Version None)
Quarter: 2011Q2

REPORT INFORMATION
  Report Type: 
  Country: None (occurrence: None)
  Receive Date: 20110607
  Receipt Date: 20110111
  Transmission Date: 20111010
  Serious: No
  Sender: FDA-Public Use
  Company Number: US-ASTRAZENECA-2011SE04223

PATIENT
  Sex: Female

DRUGS (4)
  1. THYROID THERAPY [Concomitant]
     Dosage: UNKNOWN
  2. ANTIHYPERTENSIVES [Concomitant]
     Dosage: UNKNOWN
  3. PRILOSEC OTC [Suspect]
     Dosage: 0.5 TABLET, 1 /DAY FOR 28 DAYS
     Route: 048
  4. ESTROGEN NOS [Concomitant]
     Dosage: UNKNOWN

REACTIONS (4)
  - DIARRHOEA [None]
  - WRONG TECHNIQUE IN DRUG USAGE PROCESS [None]
  - UNDERDOSE [None]
  - INCORRECT DRUG ADMINISTRATION DURATION [None]
